FAERS Safety Report 6367302-3 (Version None)
Quarter: 2009Q3

REPORT INFORMATION
  Report Type: 
  Country: None (occurrence: None)
  Receive Date: 20090921
  Receipt Date: 20090909
  Transmission Date: 20100115
  Serious: Yes (Disabling)
  Sender: FDA-Public Use
  Company Number: US-PFIZER INC-2009267315

PATIENT
  Sex: Female

DRUGS (3)
  1. ARTHROTEC [Suspect]
     Dosage: 75 MG, 2X/DAY
     Dates: start: 20090810
  2. VALSARTAN [Concomitant]
  3. LIPITOR [Concomitant]

REACTIONS (4)
  - DYSPHAGIA [None]
  - JOINT SWELLING [None]
  - NECK PAIN [None]
  - OEDEMA PERIPHERAL [None]
